FAERS Safety Report 5216983-6 (Version None)
Quarter: 2007Q1

REPORT INFORMATION
  Report Type: 
  Country: None (occurrence: None)
  Receive Date: 20070124
  Receipt Date: 20070112
  Transmission Date: 20070707
  Serious: Yes (Other)
  Sender: FDA-Public Use
  Company Number: PHRM2007FR00515

PATIENT
  Age: 12 Day

DRUGS (1)
  1. TRILEPTAL [Suspect]
     Dosage: MATERNAL DOSE : UNKNOWN
     Route: 064

REACTIONS (3)
  - DRUG EXPOSURE DURING PREGNANCY [None]
  - HYPERCALCAEMIA [None]
  - HYPERPARATHYROIDISM [None]
